FAERS Safety Report 19844893 (Version 1)
Quarter: 2021Q3

REPORT INFORMATION
  Report Type: Report from Study
  Country: MX (occurrence: MX)
  Receive Date: 20210916
  Receipt Date: 20210916
  Transmission Date: 20211014
  Serious: Yes (Death)
  Sender: FDA-Public Use
  Company Number: NVSC2021MX209867

PATIENT
  Sex: Female
  Weight: 45 kg

DRUGS (2)
  1. REVOLADE [Suspect]
     Active Substance: ELTROMBOPAG OLAMINE
     Indication: BONE MARROW DISORDER
     Dosage: 50 MG
     Route: 065
     Dates: start: 202107
  2. REVOLADE [Suspect]
     Active Substance: ELTROMBOPAG OLAMINE
     Dosage: 2 DF (2X25 MG), ONCE DAILY
     Route: 048
     Dates: start: 20210815

REACTIONS (2)
  - Death [Fatal]
  - Product use in unapproved indication [Unknown]
